FAERS Safety Report 9101019 (Version 2)
Quarter: 2013Q1

REPORT INFORMATION
  Report Type: Spontaneous
  Country: US (occurrence: US)
  Receive Date: 20130215
  Receipt Date: 20130314
  Transmission Date: 20140127
  Serious: No
  Sender: FDA-Public Use
  Company Number: US-TEVA-386178USA

PATIENT
  Sex: Female
  Weight: 73.55 kg

DRUGS (9)
  1. ACTIQ [Suspect]
     Indication: BREAKTHROUGH PAIN
     Route: 048
     Dates: start: 20100901
  2. ACTIQ [Suspect]
     Indication: LIMB DISCOMFORT
  3. ACTIQ [Suspect]
     Indication: PAIN IN EXTREMITY
  4. BYSTOLIC [Concomitant]
     Indication: HYPERTENSION
  5. PROAIR HFA [Concomitant]
     Indication: RESPIRATORY DISORDER
     Dosage: 1-2 PUFFS
  6. XANAX [Concomitant]
     Indication: ANXIETY
  7. CLONAPIN [Concomitant]
     Indication: ANXIETY
     Dosage: 1.5 MILLIGRAM DAILY;
  8. OXYCODONE [Concomitant]
     Indication: ENTERITIS
     Dosage: IMMED RELEASE TABLET
  9. ZOFRAN [Concomitant]
     Indication: PROPHYLAXIS OF NAUSEA AND VOMITING
     Dosage: ODT

REACTIONS (3)
  - Drug ineffective [Unknown]
  - Inappropriate schedule of drug administration [Unknown]
  - Drug prescribing error [Unknown]
